FAERS Safety Report 5990778-8 (Version None)
Quarter: 2008Q4

REPORT INFORMATION
  Report Type: 
  Country: None (occurrence: None)
  Receive Date: 20081211
  Receipt Date: 20081203
  Transmission Date: 20090506
  Serious: Yes (Other)
  Sender: FDA-Public Use
  Company Number: US-GENENTECH-273155

PATIENT
  Sex: Male

DRUGS (4)
  1. BEVACIZUMAB [Suspect]
     Indication: METASTATIC MALIGNANT MELANOMA
     Dosage: 15 MG/KG, Q14D
     Route: 042
     Dates: start: 20080527
  2. INTERFERON ALFA-2B [Concomitant]
     Indication: METASTATIC MALIGNANT MELANOMA
     Dosage: 5 UNK, UNK
     Route: 058
     Dates: start: 20080527
  3. INTERFERON ALFA-2B [Concomitant]
     Dosage: 10 UNK, UNK
  4. INSULIN PUMP [Concomitant]
     Indication: DIABETES MELLITUS
     Dosage: UNK

REACTIONS (2)
  - HYPOGLYCAEMIA [None]
  - NERVOUS SYSTEM DISORDER [None]
